FAERS Safety Report 5878191-5 (Version None)
Quarter: 2008Q3

REPORT INFORMATION
  Report Type: 
  Country: None (occurrence: None)
  Receive Date: 20080911
  Receipt Date: 20080903
  Transmission Date: 20090109
  Serious: Yes (Other)
  Sender: FDA-Public Use
  Company Number: PHEH2008US06831

PATIENT
  Sex: Male
  Weight: 2.857 kg

DRUGS (4)
  1. TRILEPTAL [Suspect]
     Route: 064
  2. TYLENOL (CAPLET) [Concomitant]
     Route: 064
  3. VITAMIN TAB [Concomitant]
     Route: 064
  4. FOLIC ACID [Concomitant]
     Route: 064

REACTIONS (7)
  - AGITATION NEONATAL [None]
  - DRUG EXPOSURE DURING PREGNANCY [None]
  - DRUG WITHDRAWAL SYNDROME NEONATAL [None]
  - EYELID FUNCTION DISORDER [None]
  - MUSCLE CONTRACTURE [None]
  - PREMATURE BABY [None]
  - PSYCHOMOTOR HYPERACTIVITY [None]
